FAERS Safety Report 18009046 (Version 2)
Quarter: 2021Q3

REPORT INFORMATION
  Report Type: Spontaneous
  Country: US (occurrence: US)
  Receive Date: 20200710
  Receipt Date: 20210806
  Transmission Date: 20211014
  Serious: Yes (Other)
  Sender: FDA-Public Use
  Company Number: US-SAOL THERAPEUTICS-2020SAO00024

PATIENT
  Sex: Male

DRUGS (2)
  1. LIORESAL [Suspect]
     Active Substance: BACLOFEN
     Dosage: 150 ?G, \DAY
     Route: 037
     Dates: end: 2020
  2. LIORESAL [Suspect]
     Active Substance: BACLOFEN
     Dosage: 220 ?G, \DAY
     Route: 037
     Dates: start: 2020

REACTIONS (3)
  - Drug withdrawal syndrome [Recovered/Resolved]
  - Device issue [Recovered/Resolved]
  - Excessive granulation tissue [Recovered/Resolved]
